FAERS Safety Report 15983571 (Version 1)
Quarter: 2019Q1

REPORT INFORMATION
  Report Type: Spontaneous
  Country: DE (occurrence: DE)
  Receive Date: 20190220
  Receipt Date: 20190220
  Transmission Date: 20190418
  Serious: Yes (Hospitalization, Other)
  Sender: FDA-Public Use
  Company Number: DE-AUROBINDO-AUR-APL-2019-008418

PATIENT

DRUGS (20)
  1. RITUXIMAB. [Suspect]
     Active Substance: RITUXIMAB
     Indication: DIFFUSE LARGE B-CELL LYMPHOMA
     Dosage: 1400 MILLIGRAM
     Route: 058
     Dates: start: 20160407
  2. DOXORUBICIN [Concomitant]
     Active Substance: DOXORUBICIN
     Indication: DIFFUSE LARGE B-CELL LYMPHOMA
     Dosage: 98 MILLIGRAM (ON DAY 2 OF CYCLE)
     Route: 042
     Dates: start: 20160303, end: 20160705
  3. VINCRISTIN [Concomitant]
     Active Substance: VINCRISTINE
     Indication: DIFFUSE LARGE B-CELL LYMPHOMA
     Dosage: 1 MILLIGRAM (ON DAY 2 OF CYCLE)
     Route: 042
     Dates: start: 20160303, end: 20160705
  4. ONDANSETRON [Concomitant]
     Active Substance: ONDANSETRON
     Indication: PRODUCT USED FOR UNKNOWN INDICATION
     Dosage: 8 MILLIGRAM
     Route: 065
  5. ROCEPHIN [Concomitant]
     Active Substance: CEFTRIAXONE SODIUM
     Indication: PRODUCT USED FOR UNKNOWN INDICATION
     Dosage: 2 GRAM
     Route: 065
     Dates: start: 20160329, end: 20160401
  6. UROMITEXAN [Concomitant]
     Active Substance: MESNA
     Indication: PRODUCT USED FOR UNKNOWN INDICATION
     Dosage: 600 MILLIGRAM
     Route: 065
  7. RAMIPRIL. [Concomitant]
     Active Substance: RAMIPRIL
     Indication: PRODUCT USED FOR UNKNOWN INDICATION
     Dosage: 30 MILLIGRAM (5/25 MG)
     Route: 065
  8. CYCLOPHOSPHAMID [Concomitant]
     Active Substance: CYCLOPHOSPHAMIDE
     Indication: DIFFUSE LARGE B-CELL LYMPHOMA
     Dosage: 1478 MILLIGRAM (ON DAY 2 OF CYCLE)
     Route: 042
     Dates: start: 20160303, end: 20160705
  9. RANITIDINE. [Concomitant]
     Active Substance: RANITIDINE
     Indication: PREMEDICATION
     Dosage: 50 MILLIGRAM, ON DAY 2 OF CYCLE
     Route: 042
     Dates: start: 20160303
  10. CEFUROXIME. [Concomitant]
     Active Substance: CEFUROXIME
     Indication: PRODUCT USED FOR UNKNOWN INDICATION
     Dosage: 500 MILLIGRAM
     Route: 065
     Dates: start: 20160402, end: 20160405
  11. INNOHEP [Concomitant]
     Active Substance: TINZAPARIN SODIUM
     Indication: PRODUCT USED FOR UNKNOWN INDICATION
     Dosage: 20000 INTERNATIONAL UNIT
     Route: 065
  12. PARACETAMOL [Suspect]
     Active Substance: ACETAMINOPHEN
     Indication: PREMEDICATION
     Dosage: 1 GRAM (ON DAY 1 OF CYCLE)
     Route: 048
     Dates: start: 20160302
  13. RITUXIMAB. [Suspect]
     Active Substance: RITUXIMAB
     Indication: DIFFUSE LARGE B-CELL LYMPHOMA
     Dosage: 375 MILLIGRAM ONCE
     Route: 042
     Dates: start: 20160302, end: 20160302
  14. DEXAMETHASON [Concomitant]
     Active Substance: DEXAMETHASONE
     Indication: PRODUCT USED FOR UNKNOWN INDICATION
     Dosage: 20 MILLIGRAM
     Route: 065
  15. OMEPRAZOL [Concomitant]
     Active Substance: OMEPRAZOLE
     Indication: PRODUCT USED FOR UNKNOWN INDICATION
     Dosage: 40 MILLIGRAM
     Route: 065
  16. PREDNISOLON [Concomitant]
     Active Substance: PREDNISOLONE
     Dosage: 75 MILLIGRAM (ON DAY 1 OF CYCLE)
     Route: 042
     Dates: start: 20160302
  17. TAVEGIL [Suspect]
     Active Substance: CLEMASTINE FUMARATE
     Indication: PREMEDICATION
     Dosage: 2 MILLIGRAM (ON DAY 1 OF CYCLE)
     Route: 042
     Dates: start: 20160302
  18. COTRIM FORTE [Concomitant]
     Active Substance: SULFAMETHOXAZOLE\TRIMETHOPRIM
     Indication: PRODUCT USED FOR UNKNOWN INDICATION
     Dosage: 960 MILLIGRAM
     Route: 065
  19. ACICLOVIR [Concomitant]
     Active Substance: ACYCLOVIR
     Indication: PRODUCT USED FOR UNKNOWN INDICATION
     Dosage: 400 MILLIGRAM
     Route: 065
  20. PREDNISOLON [Concomitant]
     Active Substance: PREDNISOLONE
     Indication: PREMEDICATION
     Dosage: 100 MILLIGRAM
     Route: 065

REACTIONS (4)
  - Dehydration [Unknown]
  - Mucosal inflammation [Unknown]
  - Pancytopenia [Unknown]
  - Skin ulcer [Recovering/Resolving]

NARRATIVE: CASE EVENT DATE: 20160627
